FAERS Safety Report 10476112 (Version 3)
Quarter: 2014Q4

REPORT INFORMATION
  Report Type: Spontaneous
  Country: IT (occurrence: IT)
  Receive Date: 20140925
  Receipt Date: 20141222
  Transmission Date: 20150528
  Serious: Yes (Death, Other)
  Sender: FDA-Public Use
  Company Number: IT-PFIZER INC-2014262118

PATIENT
  Age: 56 Year
  Sex: Female
  Weight: 100 kg

DRUGS (5)
  1. AMITRIPTYLINE HYDROCHLORIDE. [Concomitant]
     Active Substance: AMITRIPTYLINE HYDROCHLORIDE
     Dosage: UNK
     Dates: start: 20121201, end: 20140506
  2. GABAPENTIN. [Suspect]
     Active Substance: GABAPENTIN
     Dosage: 900 MG, DAILY
     Dates: start: 20121201, end: 20140506
  3. TEGRETOL [Suspect]
     Active Substance: CARBAMAZEPINE
     Dosage: 2 DF, DAILY
     Route: 048
     Dates: start: 20121201, end: 20140506
  4. VALPROATE SODIUM/VALPROIC ACID [Concomitant]
     Dosage: UNK
     Route: 048
     Dates: start: 20121201, end: 20140506
  5. NORTRIPTYLINE HYDROCHLORIDE. [Concomitant]
     Active Substance: NORTRIPTYLINE HYDROCHLORIDE
     Dosage: UNK
     Route: 048
     Dates: start: 20121201, end: 20140506

REACTIONS (4)
  - Cerebral ischaemia [Fatal]
  - Coma [Unknown]
  - Ileus paralytic [Fatal]
  - Anticonvulsant drug level above therapeutic [Fatal]

NARRATIVE: CASE EVENT DATE: 20140506
